FAERS Safety Report 4364908-8 (Version None)
Quarter: 2004Q2

REPORT INFORMATION
  Report Type: 
  Country: None (occurrence: None)
  Receive Date: 20040521
  Receipt Date: 20040430
  Transmission Date: 20050107
  Serious: Yes (Hospitalization)
  Sender: FDA-Public Use
  Company Number: FR_040404036

PATIENT
  Age: 47 Year
  Sex: Male

DRUGS (4)
  1. GEMZAR [Suspect]
     Indication: BLADDER CANCER
     Dosage: 2400 MG OTHER
     Route: 050
     Dates: start: 20040212
  2. ONDANSETRON HYDROCHLORIDE [Concomitant]
  3. SOLU-MEDROL [Concomitant]
  4. VOGALENE (METOPIMAZINE) [Concomitant]

REACTIONS (4)
  - OEDEMA PERIPHERAL [None]
  - PRURITUS [None]
  - RASH ERYTHEMATOUS [None]
  - RASH PAPULAR [None]
